FAERS Safety Report 8207946-7 (Version None)
Quarter: 2012Q1

REPORT INFORMATION
  Report Type: 
  Country: None (occurrence: None)
  Receive Date: 20120227
  Receipt Date: 20111122
  Transmission Date: 20120608
  Serious: No
  Sender: FDA-Public Use
  Company Number: 340038

PATIENT
  Age: 69 Year
  Sex: Male

DRUGS (3)
  1. GLIPIZIDE [Concomitant]
  2. METFORMIN HCL [Concomitant]
  3. VICTOZA [Suspect]
     Indication: TYPE 2 DIABETES MELLITUS
     Dosage: 0.6 MG, QD, SUBCUTANEOUS, 1.2 MG, QD, SUBCUTANEOUS
     Route: 058
     Dates: start: 20111001

REACTIONS (2)
  - FEELING ABNORMAL [None]
  - BLOOD GLUCOSE DECREASED [None]
